FAERS Safety Report 15279019 (Version 1)
Quarter: 2018Q3

REPORT INFORMATION
  Report Type: Report from Study
  Country: BR (occurrence: BR)
  Receive Date: 20180815
  Receipt Date: 20180815
  Transmission Date: 20181010
  Serious: Yes (Other)
  Sender: FDA-Public Use
  Company Number: BR-ROCHE-2168164

PATIENT
  Sex: Male
  Weight: 85 kg

DRUGS (4)
  1. DORFLEX [Concomitant]
     Active Substance: CAFFEINE\DIPYRONE\ORPHENADRINE
     Indication: HEADACHE
  2. ACTEMRA [Suspect]
     Active Substance: TOCILIZUMAB
     Indication: RHEUMATOID ARTHRITIS
     Route: 058
     Dates: start: 20170201
  3. ACTEMRA [Suspect]
     Active Substance: TOCILIZUMAB
     Route: 058
     Dates: start: 201802, end: 201803
  4. SUMAX [Concomitant]
     Indication: HEADACHE

REACTIONS (9)
  - Inflammation [Unknown]
  - Ill-defined disorder [Unknown]
  - Malaise [Unknown]
  - Back disorder [Unknown]
  - Hypersensitivity [Unknown]
  - Gait inability [Unknown]
  - Joint effusion [Unknown]
  - Pain [Not Recovered/Not Resolved]
  - Spondylitis [Unknown]
